FAERS Safety Report 4308515-1 (Version None)
Quarter: 2004Q1

REPORT INFORMATION
  Report Type: 
  Country: None (occurrence: None)
  Receive Date: 20040226
  Receipt Date: 20031107
  Transmission Date: 20041129
  Serious: Yes (Hospitalization)
  Sender: FDA-Public Use
  Company Number: 2003184831US

PATIENT
  Age: 77 Year
  Sex: Male

DRUGS (1)
  1. CELEBREX [Suspect]
     Dates: start: 20020101, end: 20020101

REACTIONS (2)
  - ABDOMINAL PAIN UPPER [None]
  - HAEMATOCHEZIA [None]
